FAERS Safety Report 6271895-4 (Version None)
Quarter: 2009Q3

REPORT INFORMATION
  Report Type: 
  Country: None (occurrence: None)
  Receive Date: 20090717
  Receipt Date: 20090714
  Transmission Date: 20100115
  Serious: Yes (Death)
  Sender: FDA-Public Use
  Company Number: PHHY2009MX28406

PATIENT
  Sex: Female

DRUGS (1)
  1. EXFORGE [Suspect]
     Indication: HYPERTENSION
     Dosage: UNK
     Route: 048
     Dates: start: 20090301, end: 20090701

REACTIONS (5)
  - CARDIO-RESPIRATORY ARREST [None]
  - ELECTROLYTE IMBALANCE [None]
  - HYPERTENSION [None]
  - MULTI-ORGAN FAILURE [None]
  - RENAL FAILURE [None]
